FAERS Safety Report 9626872 (Version 1)
Quarter: 2013Q4

REPORT INFORMATION
  Report Type: Spontaneous
  Country: US (occurrence: US)
  Receive Date: 20131016
  Receipt Date: 20131016
  Transmission Date: 20140711
  Serious: Yes (Other)
  Sender: FDA-Public Use
  Company Number: US-BRISTOL-MYERS SQUIBB COMPANY-19532324

PATIENT
  Age: 55 Year
  Sex: Female

DRUGS (2)
  1. COUMADIN [Suspect]
  2. ENOXAPARIN SODIUM [Suspect]
     Indication: THROMBOSIS
     Route: 058

REACTIONS (1)
  - Ovarian cyst [Unknown]
